FAERS Safety Report 6619347-3 (Version None)
Quarter: 2010Q1

REPORT INFORMATION
  Report Type: 
  Country: None (occurrence: None)
  Receive Date: 20100308
  Receipt Date: 20090519
  Transmission Date: 20100710
  Serious: No
  Sender: FDA-Public Use
  Company Number: US-TYCO HEALTHCARE/MALLINCKRODT-T200901073

PATIENT
  Age: 54 Year
  Sex: Male
  Weight: 68 kg

DRUGS (5)
  1. RESTORIL [Suspect]
     Indication: INSOMNIA
     Dosage: UNK
     Dates: start: 20090101
  2. LUNESTA [Concomitant]
     Indication: INSOMNIA
     Dosage: 3 MG, UNK
     Route: 048
     Dates: start: 20090324, end: 20090327
  3. LUNESTA [Concomitant]
     Dosage: 3 MG, UNK
     Route: 048
     Dates: start: 20090424
  4. VICODIN [Concomitant]
  5. NAPROXEN [Concomitant]

REACTIONS (1)
  - DEPENDENCE [None]
